FAERS Safety Report 16127595 (Version 3)
Quarter: 2019Q2

REPORT INFORMATION
  Report Type: Spontaneous
  Country: US (occurrence: US)
  Receive Date: 20190328
  Receipt Date: 20190417
  Transmission Date: 20190711
  Serious: Yes (Other)
  Sender: FDA-Public Use
  Company Number: US-PFIZER INC-2019126238

PATIENT
  Age: 59 Year
  Sex: Female
  Weight: 136 kg

DRUGS (1)
  1. GABAPENTIN. [Suspect]
     Active Substance: GABAPENTIN
     Dosage: UNK

REACTIONS (9)
  - Dysstasia [Unknown]
  - Impaired driving ability [Unknown]
  - Arthralgia [Unknown]
  - Peripheral swelling [Unknown]
  - Mental impairment [Unknown]
  - Drug ineffective [Unknown]
  - Confusional state [Unknown]
  - Sleep disorder [Unknown]
  - Pain in extremity [Unknown]
